FAERS Safety Report 25016380 (Version 6)
Quarter: 2025Q4

REPORT INFORMATION
  Report Type: Spontaneous
  Country: JP (occurrence: JP)
  Receive Date: 20250227
  Receipt Date: 20251122
  Transmission Date: 20260117
  Serious: Yes (Other)
  Sender: GALDERMA
  Company Number: JP-GALDERMA-JP2025002602

PATIENT

DRUGS (7)
  1. NEMOLIZUMAB [Suspect]
     Active Substance: NEMOLIZUMAB
     Indication: Neurodermatitis
     Dosage: UNK
     Route: 058
     Dates: start: 20241029, end: 20241029
  2. NEMOLIZUMAB [Suspect]
     Active Substance: NEMOLIZUMAB
     Dosage: UNK
     Route: 058
     Dates: start: 2024, end: 2024
  3. NEMOLIZUMAB [Suspect]
     Active Substance: NEMOLIZUMAB
     Dosage: UNK
     Route: 058
     Dates: start: 20241225, end: 20241225
  4. NEMOLIZUMAB [Suspect]
     Active Substance: NEMOLIZUMAB
     Dosage: UNK
     Route: 058
     Dates: start: 202510, end: 202510
  5. NEMOLIZUMAB [Suspect]
     Active Substance: NEMOLIZUMAB
     Dosage: UNK
     Route: 058
     Dates: start: 202511, end: 202511
  6. CLOBETASOL [Concomitant]
     Active Substance: CLOBETASOL
     Indication: Neurodermatitis
     Dosage: 1 DOSAGE FORM
     Route: 061
     Dates: start: 20241029
  7. WHITE PETROLATUM [Concomitant]
     Active Substance: PETROLATUM
     Indication: Neurodermatitis
     Dosage: 1 DOSAGE FORM
     Route: 061

REACTIONS (1)
  - Rhabdomyolysis [Unknown]

NARRATIVE: CASE EVENT DATE: 20250115
